FAERS Safety Report 5166983-X (Version None)
Quarter: 2006Q4

REPORT INFORMATION
  Report Type: 
  Country: None (occurrence: None)
  Receive Date: 20061129
  Receipt Date: 20061116
  Transmission Date: 20070319
  Serious: Yes (Hospitalization)
  Sender: FDA-Public Use
  Company Number: 2006142199

PATIENT
  Age: 71 Year
  Sex: Female
  Weight: 43 kg

DRUGS (7)
  1. PREDNISOLONE [Suspect]
     Indication: RHEUMATOID ARTHRITIS
     Dosage: 17.5 MG (1 IN 1 D), ORAL
     Route: 048
  2. ENBREL [Suspect]
     Indication: RHEUMATOID ARTHRITIS
     Dosage: 25 MG (2 IN 1 WK), SUBCUTANEOUS
     Route: 058
     Dates: start: 20060407, end: 20060704
  3. MOSAPRIDE (MOSAPRIDE) [Concomitant]
  4. SULFAMETHOXAZOLE + TRIMETHOPRIM [Concomitant]
  5. RANITIDINE [Concomitant]
  6. ASPIRIN [Concomitant]
  7. LORMETAZEPAM (LORMETAZEPAM) [Concomitant]

REACTIONS (4)
  - INFECTION IN AN IMMUNOCOMPROMISED HOST [None]
  - PROTEUS INFECTION [None]
  - SEPSIS [None]
  - URINARY TRACT INFECTION [None]
